FAERS Safety Report 8901943 (Version 1)
Quarter: 2012Q4

REPORT INFORMATION
  Report Type: Spontaneous
  Country: US (occurrence: None)
  Receive Date: 20121109
  Receipt Date: 20121109
  Transmission Date: 20130627
  Serious: Yes (Other)
  Sender: FDA-Public Use
  Company Number: None

PATIENT
  Age: 79 Year
  Sex: Male
  Weight: 84.82 kg

DRUGS (2)
  1. AMLODIPINE [Suspect]
     Indication: BLOOD PRESSURE HIGH
     Dosage: 1 tablet mouth twice daily mouth plus/minus 7 yrs.
     Route: 048
  2. NORVASC [Suspect]

REACTIONS (8)
  - Drug hypersensitivity [None]
  - Skin depigmentation [None]
  - Gastric disorder [None]
  - Oesophageal disorder [None]
  - Tongue disorder [None]
  - Gingival disorder [None]
  - Tooth disorder [None]
  - Jaw disorder [None]
